FAERS Safety Report 9030996 (Version 2)
Quarter: 2013Q3

REPORT INFORMATION
  Report Type: Spontaneous
  Country: GB (occurrence: GB)
  Receive Date: 20130123
  Receipt Date: 20130927
  Transmission Date: 20140515
  Serious: Yes (Disabling)
  Sender: FDA-Public Use
  Company Number: PHHY2013GB005762

PATIENT
  Age: 42 Year
  Sex: Male

DRUGS (11)
  1. METRONIDAZOLE [Suspect]
     Indication: PILONIDAL CYST
     Dosage: 400 MG, TID
     Route: 048
     Dates: start: 20130108, end: 20130109
  2. CIPROFLOXACIN [Suspect]
     Indication: PILONIDAL CYST
     Dosage: 500 MG (SINGLE DOSE BEGINING AT 19:30)
     Route: 048
     Dates: start: 20130108, end: 20130108
  3. ERYTHROMYCIN [Concomitant]
     Indication: PILONIDAL CYST
     Dosage: 500 MG, QID
     Route: 048
     Dates: start: 20121220, end: 20121227
  4. CO-CODAMOL [Concomitant]
     Indication: PAIN
     Dosage: 2 DF, QID
     Route: 048
     Dates: start: 20130108
  5. CO-CODAMOL [Concomitant]
     Dosage: 30MG/500MG
     Route: 048
     Dates: start: 20130108
  6. TRAMADOL [Concomitant]
     Indication: PAIN
     Dosage: 100 MG, UNK
     Route: 048
     Dates: start: 20130109, end: 20130109
  7. MORPHINE SULPHATE [Concomitant]
     Indication: PAIN
     Dosage: 20MG STAT AT 10:20AM 10MG/5ML ORAL SOLUTION.
     Route: 048
     Dates: start: 20130109, end: 20130109
  8. MORPHINE SULPHATE [Concomitant]
     Dosage: 10MG/1ML SOLUTION
     Route: 040
     Dates: start: 20130109, end: 20130109
  9. MORPHINE SULPHATE [Concomitant]
     Dosage: 10MG/5ML ORAL SOLUTION. 20MG STAT AT 10:20AM
     Route: 048
     Dates: start: 20130109, end: 20130109
  10. PARACETAMOL [Concomitant]
     Dosage: 1G STAT AT 11AM
     Route: 048
     Dates: start: 20130109, end: 20130109
  11. IBUPROFEN [Concomitant]
     Indication: PAIN
     Dosage: 400MG STAT AT 10:30AM
     Route: 048
     Dates: start: 20130109, end: 201301

REACTIONS (2)
  - Deafness bilateral [Recovered/Resolved]
  - Vertigo [Not Recovered/Not Resolved]
